FAERS Safety Report 7449733-3 (Version None)
Quarter: 2011Q2

REPORT INFORMATION
  Report Type: 
  Country: None (occurrence: None)
  Receive Date: 20110502
  Receipt Date: 20110418
  Transmission Date: 20111010
  Serious: Yes (Hospitalization)
  Sender: FDA-Public Use
  Company Number: FR-JNJFOC-20110308115

PATIENT
  Age: 34 Year
  Sex: Male
  Weight: 68.5 kg

DRUGS (4)
  1. REMICADE [Suspect]
     Indication: PSORIATIC ARTHROPATHY
     Route: 042
  2. REMICADE [Suspect]
     Route: 042
  3. CELEBREX [Concomitant]
     Indication: ARTHRALGIA
  4. REMICADE [Suspect]
     Route: 042

REACTIONS (2)
  - HEADACHE [None]
  - CEREBELLAR SYNDROME [None]
